FAERS Safety Report 4594218-5 (Version None)
Quarter: 2005Q1

REPORT INFORMATION
  Report Type: 
  Country: None (occurrence: None)
  Receive Date: 20050301
  Receipt Date: 20040715
  Transmission Date: 20050727
  Serious: No
  Sender: FDA-Public Use
  Company Number: US-GLAXOSMITHKLINE-A0518538A

PATIENT
  Age: 72 Year
  Sex: Male

DRUGS (3)
  1. VALTREX [Suspect]
     Indication: ILL-DEFINED DISORDER
     Dosage: 500MG THREE TIMES PER DAY
     Route: 048
  2. LIPITOR [Concomitant]
  3. TRICOR [Concomitant]

REACTIONS (1)
  - PLATELET COUNT DECREASED [None]
